FAERS Safety Report 7912310-1 (Version None)
Quarter: 2011Q4

REPORT INFORMATION
  Report Type: 
  Country: None (occurrence: None)
  Receive Date: 20111114
  Receipt Date: 20110729
  Transmission Date: 20120403
  Serious: No
  Sender: FDA-Public Use
  Company Number: US-BAYER-2011-069387

PATIENT

DRUGS (3)
  1. ALEVE (CAPLET) [Suspect]
     Indication: PAIN
  2. EXCEDRIN (MIGRAINE) [Suspect]
  3. ACETAMINOPHEN [Concomitant]

REACTIONS (1)
  - PAIN [None]
